FAERS Safety Report 8789398 (Version 1)
Quarter: 2012Q4

REPORT INFORMATION
  Report Type: Spontaneous
  Country: US (occurrence: None)
  Receive Date: 20120904
  Receipt Date: 20120904
  Transmission Date: 20130627
  Serious: Yes (Other)
  Sender: FDA-Public Use
  Company Number: 218641

PATIENT
  Age: 27 Year
  Sex: Female
  Weight: 120 kg

DRUGS (1)
  1. PICATO [Suspect]
     Indication: ACTINIC KERATOSIS
     Route: 061
     Dates: start: 20120807, end: 20120808

REACTIONS (5)
  - Dermatitis contact [None]
  - Application site erythema [None]
  - Application site vesicles [None]
  - Drug administered at inappropriate site [None]
  - Application site pain [None]
